FAERS Safety Report 7409144-3 (Version None)
Quarter: 2011Q2

REPORT INFORMATION
  Report Type: 
  Country: None (occurrence: None)
  Receive Date: 20110408
  Receipt Date: 20110408
  Transmission Date: 20111010
  Serious: No
  Sender: FDA-Public Use
  Company Number: None

PATIENT
  Age: 43 Year
  Sex: Female

DRUGS (1)
  1. CARBAMAZEPINE [Suspect]
     Dates: start: 20090905, end: 20091031

REACTIONS (8)
  - RESPIRATORY FAILURE [None]
  - PLEURAL EFFUSION [None]
  - LIVER DISORDER [None]
  - DRUG RASH WITH EOSINOPHILIA AND SYSTEMIC SYMPTOMS [None]
  - HEPATIC FAILURE [None]
  - CHOLESTASIS [None]
  - CHOLECYSTITIS [None]
  - SEPSIS [None]
